FAERS Safety Report 7525596-2 (Version None)
Quarter: 2011Q2

REPORT INFORMATION
  Report Type: 
  Country: None (occurrence: None)
  Receive Date: 20110606
  Receipt Date: 20110523
  Transmission Date: 20111010
  Serious: Yes (Hospitalization, Other)
  Sender: FDA-Public Use
  Company Number: PHHY2011MX46069

PATIENT
  Age: 65 Year
  Sex: Female

DRUGS (1)
  1. ZOLEDRONIC ACID [Suspect]
     Indication: OSTEOPOROSIS
     Dosage: 5 MG
     Route: 042
     Dates: start: 20091101

REACTIONS (10)
  - VARICOSE VEIN [None]
  - DYSPNOEA [None]
  - ANGINA PECTORIS [None]
  - FLUID RETENTION [None]
  - BALANCE DISORDER [None]
  - INSOMNIA [None]
  - CARDIOVASCULAR DISORDER [None]
  - BLOOD PRESSURE FLUCTUATION [None]
  - FATIGUE [None]
  - DIZZINESS [None]
